FAERS Safety Report 19740172 (Version 2)
Quarter: 2021Q3

REPORT INFORMATION
  Report Type: Spontaneous
  Country: AU (occurrence: AU)
  Receive Date: 20210824
  Receipt Date: 20210831
  Transmission Date: 20211014
  Serious: Yes (Other)
  Sender: FDA-Public Use
  Company Number: AU-EMD SERONO-9260001

PATIENT
  Age: 54 Year
  Sex: Female

DRUGS (1)
  1. REBIF [Suspect]
     Active Substance: INTERFERON BETA-1A
     Indication: PRODUCT USED FOR UNKNOWN INDICATION

REACTIONS (2)
  - Sepsis [Unknown]
  - Disease progression [Unknown]

NARRATIVE: CASE EVENT DATE: 202102
